FAERS Safety Report 12233578 (Version 1)
Quarter: 2016Q2

REPORT INFORMATION
  Report Type: Spontaneous
  Country: US (occurrence: US)
  Receive Date: 20160404
  Receipt Date: 20160404
  Transmission Date: 20160815
  Serious: No
  Sender: FDA-Public Use
  Company Number: US-GLENMARK PHARMACEUTICALS INC, USA.-2015GMK016922

PATIENT

DRUGS (2)
  1. CICLOPIROX. [Suspect]
     Active Substance: CICLOPIROX
     Indication: RASH
     Dosage: UNK
     Route: 061
  2. CICLOPIROX. [Suspect]
     Active Substance: CICLOPIROX
     Indication: PERIPHERAL VASCULAR DISORDER

REACTIONS (4)
  - Drug prescribing error [Unknown]
  - Rash [Unknown]
  - Product use issue [Unknown]
  - Medication error [Unknown]
